FAERS Safety Report 6728645-4 (Version None)
Quarter: 2010Q2

REPORT INFORMATION
  Report Type: 
  Country: None (occurrence: None)
  Receive Date: 20100517
  Receipt Date: 20100507
  Transmission Date: 20101027
  Serious: Yes (Hospitalization, Other)
  Sender: FDA-Public Use
  Company Number: JP-PFIZER INC-2010038952

PATIENT
  Age: 84 Year
  Sex: Male

DRUGS (1)
  1. SALAZOPYRIN [Suspect]
     Indication: COLITIS ULCERATIVE
     Dosage: UNK

REACTIONS (2)
  - ANAEMIA MEGALOBLASTIC [None]
  - FOLATE DEFICIENCY [None]
